FAERS Safety Report 23966649 (Version 2)
Quarter: 2024Q3

REPORT INFORMATION
  Report Type: Spontaneous
  Country: CA (occurrence: CA)
  Receive Date: 20240612
  Receipt Date: 20240709
  Transmission Date: 20241016
  Serious: Yes (Other)
  Sender: AMERICAN REGENT
  Company Number: CA-AMERICAN REGENT INC-2024002208

PATIENT
  Age: 33 Year
  Sex: Female

DRUGS (2)
  1. VENOFER [Suspect]
     Active Substance: IRON SUCROSE
     Indication: Serum ferritin decreased
     Dosage: DOSAGE TEXT: 100 MG/ 5ML
     Route: 050
     Dates: start: 20240209, end: 20240209
  2. HYDROCORTISONE [Concomitant]
     Active Substance: HYDROCORTISONE\HYDROCORTISONE ACETATE
     Indication: Product used for unknown indication
     Dosage: 100 MILLIGRAM
     Dates: start: 20240209, end: 20240209

REACTIONS (11)
  - Pallor [Recovered/Resolved]
  - Ill-defined disorder [Recovered/Resolved]
  - Rash [Recovered/Resolved]
  - Paraesthesia [Recovered/Resolved]
  - Abdominal pain [Recovered/Resolved]
  - Blood pressure decreased [Recovered/Resolved]
  - Depressed level of consciousness [Recovered/Resolved]
  - Dizziness [Recovered/Resolved]
  - Peripheral swelling [Recovered/Resolved]
  - Abdominal pain upper [Recovered/Resolved]
  - Incorrect product administration duration [Unknown]

NARRATIVE: CASE EVENT DATE: 20240209
